FAERS Safety Report 5884010-3 (Version None)
Quarter: 2008Q3

REPORT INFORMATION
  Report Type: 
  Country: None (occurrence: None)
  Receive Date: 20080915
  Receipt Date: 20080910
  Transmission Date: 20090109
  Serious: Yes (Hospitalization)
  Sender: FDA-Public Use
  Company Number: JP-AVENTIS-200812349JP

PATIENT
  Age: 80 Year
  Sex: Female

DRUGS (11)
  1. AMARYL [Suspect]
     Route: 048
  2. ACTOS [Concomitant]
     Route: 048
  3. THEOLONG [Concomitant]
     Route: 048
  4. FRANDOL [Concomitant]
     Dosage: DOSE: 1 SHEET/DAY
     Route: 062
  5. OLMETEC [Concomitant]
     Route: 048
  6. LASIX [Concomitant]
     Route: 048
  7. NORVASC [Concomitant]
     Route: 048
  8. ZYLORIC [Concomitant]
     Route: 048
  9. ALDACTONE [Concomitant]
     Route: 048
  10. WARFARIN SODIUM [Concomitant]
     Route: 048
  11. HALFDIGOXIN [Concomitant]
     Route: 048

REACTIONS (1)
  - ANGLE CLOSURE GLAUCOMA [None]
